FAERS Safety Report 11890537 (Version 8)
Quarter: 2016Q2

REPORT INFORMATION
  Report Type: Report from Study
  Country: CA (occurrence: CA)
  Receive Date: 20160105
  Receipt Date: 20160414
  Transmission Date: 20160815
  Serious: Yes (Hospitalization, Other)
  Sender: FDA-Public Use
  Company Number: CA-GILEAD-2015-0181405

PATIENT
  Age: 87 Year
  Sex: Male
  Weight: 69.5 kg

DRUGS (21)
  1. AVODART [Concomitant]
     Active Substance: DUTASTERIDE
     Indication: BENIGN PROSTATIC HYPERPLASIA
  2. XARELTO [Concomitant]
     Active Substance: RIVAROXABAN
  3. ACETAMINOPHEN. [Concomitant]
     Active Substance: ACETAMINOPHEN
  4. MACROBID [Concomitant]
     Active Substance: NITROFURANTOIN\NITROFURANTOIN MONOHYDRATE
     Indication: URINARY TRACT INFECTION
  5. ISOPTO TEARS                       /00445101/ [Concomitant]
  6. IDELALISIB [Suspect]
     Active Substance: IDELALISIB
     Dosage: 100 MG, UNK
     Route: 048
     Dates: start: 2015
  7. DULCOLAX (BISACODYL) [Concomitant]
     Active Substance: BISACODYL
  8. ASA [Concomitant]
     Active Substance: ASPIRIN
     Dosage: 81 MG, UNK
     Route: 048
  9. PANTOPRAZOLE [Concomitant]
     Active Substance: PANTOPRAZOLE SODIUM
  10. LOPERAMIDE [Concomitant]
     Active Substance: LOPERAMIDE
  11. PREDNISONE. [Concomitant]
     Active Substance: PREDNISONE
     Indication: CHRONIC OBSTRUCTIVE PULMONARY DISEASE
     Dosage: UNK
     Dates: start: 20151120, end: 20151210
  12. LYRICA [Concomitant]
     Active Substance: PREGABALIN
  13. PREDNISONE. [Concomitant]
     Active Substance: PREDNISONE
     Indication: PNEUMONIA
  14. TOBRAMYCIN. [Concomitant]
     Active Substance: TOBRAMYCIN
     Route: 047
  15. IDELALISIB [Suspect]
     Active Substance: IDELALISIB
     Indication: NON-HODGKIN^S LYMPHOMA UNSPECIFIED HISTOLOGY INDOLENT
     Dosage: 150 MG, BID
     Route: 048
     Dates: start: 20150630
  16. FLOMAX [Concomitant]
     Active Substance: TAMSULOSIN HYDROCHLORIDE
  17. VITAMIN D                          /00107901/ [Concomitant]
     Active Substance: ERGOCALCIFEROL
  18. LACTULOSE. [Concomitant]
     Active Substance: LACTULOSE
     Dosage: UNK, PRN
  19. METADOL                            /00068902/ [Concomitant]
  20. SENOKOT [Concomitant]
     Active Substance: SENNOSIDES
  21. GRAVOL [Concomitant]
     Active Substance: DIMENHYDRINATE

REACTIONS (11)
  - Fatigue [Unknown]
  - Asthenia [Unknown]
  - Disease progression [Unknown]
  - Pneumonia [Recovered/Resolved]
  - Herpes zoster [Unknown]
  - Diarrhoea [Recovering/Resolving]
  - Autoimmune haemolytic anaemia [Recovered/Resolved]
  - Haemoglobin decreased [Unknown]
  - Autoimmune haemolytic anaemia [Recovering/Resolving]
  - Cardiac failure congestive [Recovering/Resolving]
  - Dyspnoea [Unknown]

NARRATIVE: CASE EVENT DATE: 201510
